FAERS Safety Report 8248780-1 (Version None)
Quarter: 2012Q1

REPORT INFORMATION
  Report Type: 
  Country: None (occurrence: None)
  Receive Date: 20120331
  Receipt Date: 20120323
  Transmission Date: 20120608
  Serious: Yes (Death)
  Sender: FDA-Public Use
  Company Number: PHEH2012US006624

PATIENT
  Sex: Male

DRUGS (15)
  1. HYTONE [Concomitant]
     Dosage: UNK UKN, UNK
     Route: 061
  2. CAPSAICIN [Concomitant]
     Dosage: UNK UKN, UNK
     Route: 061
  3. FLEXERIL [Concomitant]
     Dosage: 1 DF, PRN
     Route: 048
  4. VALIUM [Concomitant]
     Dosage: 1 DF, PRN
     Route: 048
  5. VITAMIN D [Concomitant]
     Dosage: UNK UKN, UNK
     Route: 048
  6. SONATA [Concomitant]
     Dosage: 1 DF, QD
     Route: 048
  7. RECLAST [Concomitant]
     Dosage: UNK UKN, UNK
     Route: 042
  8. NUVIGIL [Concomitant]
     Dosage: 150 MG, QD
     Route: 048
  9. CALTRATE 600 + VITAMIN D [Concomitant]
     Dosage: 1 DF, BID
     Route: 048
  10. COLACE [Concomitant]
     Dosage: 1 DF, BID
     Route: 048
  11. ASCORBIC ACID [Concomitant]
     Dosage: UNK UKN, UNK
     Route: 048
  12. DETROL [Concomitant]
     Dosage: 1 DF, QD
     Route: 048
  13. GILENYA [Suspect]
     Indication: MULTIPLE SCLEROSIS
     Dosage: 0.5 MG, QD
     Route: 048
     Dates: start: 20110929
  14. MS CONTIN [Concomitant]
     Dosage: 1 DF, BID
     Route: 048
  15. PERCOCET [Concomitant]
     Dosage: UNK UKN, UNK
     Route: 048

REACTIONS (1)
  - DEATH [None]
